FAERS Safety Report 10185840 (Version 1)
Quarter: 2014Q2

REPORT INFORMATION
  Report Type: Spontaneous
  Country: US (occurrence: US)
  Receive Date: 20140521
  Receipt Date: 20140521
  Transmission Date: 20141212
  Serious: No
  Sender: FDA-Public Use
  Company Number: US-BAYER-2014-075222

PATIENT
  Age: 80 Year
  Sex: Male
  Weight: 81.63 kg

DRUGS (7)
  1. ALEVE CAPLET [Suspect]
     Indication: ARTHRITIS
     Dosage: 1 DF, QD
     Route: 048
  2. FISH OIL [Concomitant]
  3. MULTIVITAMIN [Concomitant]
  4. ASPIRIN [Concomitant]
  5. VITAMIN D3 [Concomitant]
  6. TRIBENZOR [Concomitant]
  7. CRESTOR [Concomitant]

REACTIONS (1)
  - Incorrect drug administration duration [None]
